FAERS Safety Report 10276420 (Version 1)
Quarter: 2014Q3

REPORT INFORMATION
  Report Type: Spontaneous
  Country: US (occurrence: US)
  Receive Date: 20140703
  Receipt Date: 20140703
  Transmission Date: 20150326
  Serious: Yes (Other)
  Sender: FDA-Public Use
  Company Number: US-ASTELLAS-2014US007707

PATIENT
  Sex: Male

DRUGS (1)
  1. PROTOPIC [Suspect]
     Active Substance: TACROLIMUS
     Indication: RASH
     Dosage: 0.1 %, UNKNOWN FREQ.
     Route: 061

REACTIONS (4)
  - Off label use [Unknown]
  - Frequent bowel movements [Unknown]
  - Proctalgia [Unknown]
  - Blister [Unknown]
